FAERS Safety Report 16269650 (Version 1)
Quarter: 2019Q2

REPORT INFORMATION
  Report Type: Spontaneous
  Country: US (occurrence: US)
  Receive Date: 20190502
  Receipt Date: 20190502
  Transmission Date: 20190711
  Serious: Yes (Hospitalization)
  Sender: FDA-Public Use
  Company Number: None

PATIENT
  Age: 64 Year
  Sex: Female

DRUGS (4)
  1. NASACORT, VENTOLIN, LIVALO, HYDROCO/APAP [Concomitant]
  2. XELJANZ [Suspect]
     Active Substance: TOFACITINIB CITRATE
     Indication: RHEUMATOID ARTHRITIS
     Route: 048
     Dates: start: 20180501
  3. WELLBUTRIN, MYRBETRIQ, LIVALO, PANTOPRAZOLE, ANTIBIOTIC, SYNTHROID, [Concomitant]
  4. LIVALO, LEVOTHYROXIN, PANTOPRAZOLE, BUPROPN HCL, AMOX/K [Concomitant]

REACTIONS (1)
  - Diverticulitis [None]

NARRATIVE: CASE EVENT DATE: 20190315
